FAERS Safety Report 4392844-X (Version None)
Quarter: 2004Q3

REPORT INFORMATION
  Report Type: 
  Country: None (occurrence: None)
  Receive Date: 20040708
  Receipt Date: 20040628
  Transmission Date: 20050211
  Serious: Yes (Hospitalization)
  Sender: FDA-Public Use
  Company Number: PHRM2004FR02247

PATIENT
  Age: 82 Year
  Sex: Female

DRUGS (7)
  1. EXELON [Suspect]
     Indication: DEMENTIA ALZHEIMER'S TYPE
     Dosage: 2 CAPS/DAY
     Route: 048
     Dates: start: 20040402, end: 20040428
  2. ACETAMINOPHEN W/ CODEINE [Suspect]
     Indication: HEADACHE
     Dosage: 6 TAB/DAY
     Route: 048
  3. PRAZEPAM [Suspect]
     Indication: ANXIETY
     Dosage: 15 DROPS/DAY
     Route: 048
  4. DURAGESIC [Suspect]
     Indication: HEADACHE
     Dosage: 1 DF, QW3
     Route: 062
  5. TRAMADOL HCL [Suspect]
     Indication: HEADACHE
     Dosage: 100 MG/DAY
     Route: 048
     Dates: start: 20040310, end: 20040428
  6. ACUPAN [Concomitant]
     Indication: HEADACHE
     Route: 042
     Dates: start: 20040310, end: 20040428
  7. STABLON [Concomitant]
     Dosage: 25 MG/DAY
     Route: 048

REACTIONS (6)
  - DEMENTIA ALZHEIMER'S TYPE [None]
  - DISEASE PROGRESSION [None]
  - DISORIENTATION [None]
  - DRUG INTERACTION [None]
  - GENERAL PHYSICAL HEALTH DETERIORATION [None]
  - HEADACHE [None]
